FAERS Safety Report 6528694-5 (Version None)
Quarter: 2009Q4

REPORT INFORMATION
  Report Type: 
  Country: None (occurrence: None)
  Receive Date: 20091222
  Receipt Date: 20091109
  Transmission Date: 20100525
  Serious: No
  Sender: FDA-Public Use
  Company Number: ALL1-2009-03594

PATIENT
  Age: 35 Year
  Sex: Female

DRUGS (4)
  1. VYVANSE [Suspect]
     Indication: DRUG USE FOR UNKNOWN INDICATION
     Dosage: 60 MG, 1X/DAY: QD, ORAL: 50 MG, 1X/DAY: QD, ORAL
     Route: 048
     Dates: start: 20091001, end: 20090101
  2. VYVANSE [Suspect]
     Indication: DRUG USE FOR UNKNOWN INDICATION
     Dosage: 60 MG, 1X/DAY: QD, ORAL: 50 MG, 1X/DAY: QD, ORAL
     Route: 048
     Dates: start: 20090101
  3. PROZAC [Suspect]
     Indication: DRUG USE FOR UNKNOWN INDICATION
     Dosage: ORAL
     Route: 048
  4. CELEXA [Suspect]
     Indication: DRUG USE FOR UNKNOWN INDICATION
     Dosage: ORAL
     Route: 048
     Dates: start: 20090101

REACTIONS (5)
  - CONSTIPATION [None]
  - DRUG EFFECT INCREASED [None]
  - HEADACHE [None]
  - IMPULSIVE BEHAVIOUR [None]
  - INSOMNIA [None]
